FAERS Safety Report 6105392-3 (Version None)
Quarter: 2009Q1

REPORT INFORMATION
  Report Type: 
  Country: None (occurrence: None)
  Receive Date: 20090306
  Receipt Date: 20090224
  Transmission Date: 20090719
  Serious: Yes (Other)
  Sender: FDA-Public Use
  Company Number: MY-PFIZER INC-2009160507

PATIENT

DRUGS (1)
  1. SULPERAZON [Suspect]
     Dosage: UNK
     Route: 042
     Dates: start: 20080101, end: 20080101

REACTIONS (1)
  - HAEMOLYTIC ANAEMIA [None]
